FAERS Safety Report 5889223-2 (Version None)
Quarter: 2008Q3

REPORT INFORMATION
  Report Type: 
  Country: None (occurrence: None)
  Receive Date: 20080919
  Receipt Date: 20080829
  Transmission Date: 20090109
  Serious: Yes (Other)
  Sender: FDA-Public Use
  Company Number: US-ROCHE-578151

PATIENT
  Sex: Female
  Weight: 54 kg

DRUGS (1)
  1. BONIVA [Suspect]
     Indication: DRUG USE FOR UNKNOWN INDICATION
     Route: 048
     Dates: start: 20060427, end: 20070127

REACTIONS (3)
  - CHEST PAIN [None]
  - LOOSE TOOTH [None]
  - PAIN IN JAW [None]
